FAERS Safety Report 19430366 (Version 1)
Quarter: 2021Q2

REPORT INFORMATION
  Report Type: Report from Study
  Country: EG (occurrence: EG)
  Receive Date: 20210617
  Receipt Date: 20210617
  Transmission Date: 20210717
  Serious: Yes (Death, Hospitalization)
  Sender: FDA-Public Use
  Company Number: NVSC2021EG135377

PATIENT
  Age: 45 Year
  Sex: Male

DRUGS (9)
  1. AFINITOR [Suspect]
     Active Substance: EVEROLIMUS
     Indication: METASTASES TO BONE
     Dosage: 1 DF, QD (1 TAB/DAY)
     Route: 048
     Dates: start: 20201101
  2. OSTEOCARE [Concomitant]
     Active Substance: CALCIUM\CHOLECALCIFEROL\MAGNESIUM\ZINC
     Indication: PRODUCT USED FOR UNKNOWN INDICATION
     Dosage: 1 DF, QD (1 TAB/DAY)
     Route: 065
  3. XGEVA [Concomitant]
     Active Substance: DENOSUMAB
     Indication: PRODUCT USED FOR UNKNOWN INDICATION
     Dosage: UNK (SYRINGE EVERY 15 DAYS)
     Route: 065
  4. EXFORGE HCT [Concomitant]
     Active Substance: AMLODIPINE BESYLATE\HYDROCHLOROTHIAZIDE\VALSARTAN
     Indication: PRODUCT USED FOR UNKNOWN INDICATION
     Dosage: 1 DF, QD
     Route: 065
  5. TRAMADOL. [Concomitant]
     Active Substance: TRAMADOL
     Indication: PRODUCT USED FOR UNKNOWN INDICATION
     Dosage: 3 DF, QD (3TAB/DAY)
     Route: 065
  6. DURAGESIC [Concomitant]
     Active Substance: FENTANYL
     Indication: PRODUCT USED FOR UNKNOWN INDICATION
     Dosage: 1 DF (1 PATCH EXCHANGED EVERY 2.5 DAYS)
     Route: 065
  7. ACTRAPID [Concomitant]
     Active Substance: INSULIN HUMAN
     Indication: PRODUCT USED FOR UNKNOWN INDICATION
     Dosage: UNK
     Route: 065
  8. LENVIMA [Concomitant]
     Active Substance: LENVATINIB
     Indication: PRODUCT USED FOR UNKNOWN INDICATION
     Dosage: 14 MG, QD (1 PACK 10 MG 1 TAB/DAY AND OTHER PACK 4 MG 1 TAB/DAY)
     Route: 065
  9. SOLPADEINE [Concomitant]
     Indication: PRODUCT USED FOR UNKNOWN INDICATION
     Dosage: UNK, Q4H (6 TIMES/DAY)
     Route: 065

REACTIONS (9)
  - Withdrawal syndrome [Unknown]
  - Spinal column injury [Recovered/Resolved]
  - Depression [Unknown]
  - Septic shock [Fatal]
  - Gingival disorder [Unknown]
  - Renal impairment [Fatal]
  - Hepatic function abnormal [Fatal]
  - Mouth ulceration [Unknown]
  - Disease recurrence [Recovered/Resolved]

NARRATIVE: CASE EVENT DATE: 202102
